FAERS Safety Report 9353897 (Version 3)
Quarter: 2014Q2

REPORT INFORMATION
  Report Type: Report from Study
  Country: FR (occurrence: FR)
  Receive Date: 20130618
  Receipt Date: 20140411
  Transmission Date: 20141212
  Serious: Yes (Hospitalization)
  Sender: FDA-Public Use
  Company Number: FR-MERCK-1306FRA004139

PATIENT
  Age: 50 Year
  Sex: Female
  Weight: 53 kg

DRUGS (22)
  1. BOCEPREVIR [Suspect]
     Indication: HEPATITIS C
     Dosage: UNK
     Route: 048
     Dates: start: 20120208, end: 20130116
  2. REBETOL [Suspect]
     Indication: HEPATITIS C
     Dosage: UNK
     Route: 048
     Dates: start: 20120208
  3. VIRAFERONPEG [Interacting]
     Indication: HEPATITIS C
     Dosage: UNK
     Route: 058
     Dates: start: 20120208
  4. KARDEGIC [Suspect]
     Indication: ANGIOPLASTY
     Dosage: UNK
     Dates: start: 20070725, end: 20120822
  5. KARDEGIC [Suspect]
     Dosage: UNK
     Dates: start: 20130311
  6. ISENTRESS [Concomitant]
     Dosage: UNK
     Dates: start: 20080929
  7. TRUVADA [Concomitant]
     Indication: HIV INFECTION
     Dosage: UNK
     Dates: start: 20080220
  8. EFFEXOR [Concomitant]
     Indication: DEPRESSION
     Dosage: UNK
     Dates: start: 20110126
  9. ATHYMIL [Concomitant]
     Indication: DEPRESSION
     Dosage: UNK
     Dates: start: 20070216
  10. INEXIUM [Concomitant]
     Indication: GASTRITIS
     Dosage: UNK
     Dates: start: 20070503
  11. PLAVIX [Concomitant]
     Indication: ARTERITIS
     Dosage: UNK
     Dates: start: 20130311
  12. PLAVIX [Concomitant]
     Indication: ANGIOPLASTY
  13. LOXAPAC (LOXAPINE SUCCINATE) [Concomitant]
     Indication: AFFECTIVE DISORDER
     Dosage: 25 MG, QD
     Dates: start: 20120221, end: 20120725
  14. LOXAPAC (LOXAPINE SUCCINATE) [Concomitant]
     Indication: ANXIETY
     Dosage: 50 MG, QD
     Dates: start: 20120725, end: 20120822
  15. LOXAPAC (LOXAPINE SUCCINATE) [Concomitant]
     Dosage: 50 MG, BID
     Dates: start: 20120822, end: 20130429
  16. LOXAPAC (LOXAPINE SUCCINATE) [Concomitant]
     Dosage: 50 MG, QD
     Dates: start: 20130429, end: 20130513
  17. LOXAPAC (LOXAPINE SUCCINATE) [Concomitant]
     Dosage: 50 MG, QD
     Dates: start: 20130513
  18. METHADONE HYDROCHLORIDE [Concomitant]
     Dosage: 200 MG, QD
     Dates: end: 20130517
  19. METHADONE HYDROCHLORIDE [Concomitant]
     Dosage: 15 MG, QD
     Dates: start: 20130517
  20. LARGACTIL [Concomitant]
     Indication: INSOMNIA
     Dosage: 1 DF, QD
     Dates: start: 20090130, end: 20120309
  21. MEPRONIZINE [Concomitant]
     Indication: INSOMNIA
     Dosage: UNK
     Dates: start: 20090130, end: 20120308
  22. DOLIPRANE [Concomitant]
     Indication: ADVERSE EVENT
     Dosage: 1 DF, BID
     Dates: start: 20120208

REACTIONS (1)
  - Thrombocytopenia [Recovered/Resolved]
